FAERS Safety Report 12522409 (Version 1)
Quarter: 2016Q3

REPORT INFORMATION
  Report Type: Spontaneous
  Country: CN (occurrence: CN)
  Receive Date: 20160701
  Receipt Date: 20160701
  Transmission Date: 20161109
  Serious: Yes (Hospitalization)
  Sender: FDA-Public Use
  Company Number: CN-MYLANLABS-2016M1027339

PATIENT

DRUGS (1)
  1. WARFARIN [Suspect]
     Active Substance: WARFARIN
     Indication: ATRIAL FIBRILLATION
     Dosage: 3 MG/DAY
     Route: 065

REACTIONS (7)
  - Haemorrhagic infarction [Recovered/Resolved]
  - Intestinal haematoma [Recovered/Resolved]
  - Peritonitis [Recovered/Resolved]
  - Intestinal strangulation [Recovered/Resolved]
  - Intestinal obstruction [Recovered/Resolved]
  - Gastrointestinal necrosis [Recovered/Resolved]
  - Coagulopathy [Recovered/Resolved]
